FAERS Safety Report 17709601 (Version 1)
Quarter: 2020Q2

REPORT INFORMATION
  Report Type: Spontaneous
  Country: DE (occurrence: DE)
  Receive Date: 20200427
  Receipt Date: 20200427
  Transmission Date: 20200714
  Serious: Yes (Hospitalization)
  Sender: FDA-Public Use
  Company Number: DE-TEVA-2020-DE-1226615

PATIENT
  Age: 58 Year
  Sex: Male

DRUGS (16)
  1. MAGNESIUM [Concomitant]
     Active Substance: MAGNESIUM
     Dosage: 600 MILLIGRAM DAILY;
  2. QUETIAPIN [Concomitant]
     Active Substance: QUETIAPINE
     Dosage: 25 MILLIGRAM DAILY; 0-0-0-1
  3. ALLOPURINOL. [Concomitant]
     Active Substance: ALLOPURINOL
     Dosage: 600 MILLIGRAM DAILY; 1-0-1-0
  4. BRIMONIDIN [Concomitant]
     Dosage: 2 GTT DAILY; 1-0-1-0, DROPS
     Route: 047
  5. METOPROLOL. [Concomitant]
     Active Substance: METOPROLOL
     Dosage: 95 MILLIGRAM DAILY; 1-0-1-0
  6. PREDNISOLON [Suspect]
     Active Substance: PREDNISOLONE
     Dosage: 5 MG, ACCORDING TO SCHEMA
  7. PHENPROCOUMON [Suspect]
     Active Substance: PHENPROCOUMON
     Dosage: 3 MG, ACCORDING TO INR
  8. SALBUTAMOL [Concomitant]
     Active Substance: ALBUTEROL
     Dosage: 5, DROPS
     Route: 055
  9. COLCHICIN [Concomitant]
     Active Substance: COLCHICINE
     Dosage: 0.5 MG, DISCONTINUED ON 13022020
     Dates: end: 20200213
  10. PANTOPRAZOL [Concomitant]
     Active Substance: PANTOPRAZOLE SODIUM
     Dosage: 40 MILLIGRAM DAILY; 1-0-0-0
  11. TRIMBOW [Concomitant]
     Active Substance: BECLOMETHASONE DIPROPIONATE\FORMOTEROL FUMARATE\GLYCOPYRROLATE
     Dosage: 4 DOSAGE FORMS DAILY; 87|11|5 MG, 2-0-2-0
  12. CHININ [Suspect]
     Active Substance: QUININE HYDROCHLORIDE
     Dosage: 165.74 MG, REQUIREMENT; 1 DOSAGE FORM
  13. SIMVASTATIN. [Concomitant]
     Active Substance: SIMVASTATIN
     Dosage: 40 MG, 0-0-0.5-0; 20MG
  14. TILIDIN/NALOXON [Concomitant]
     Active Substance: NALOXONE HYDROCHLORIDE\TILIDINE HYDROCHLORIDE
     Dosage: 8|100 MG, DEMAND
  15. CODEIN [Suspect]
     Active Substance: CODEINE
     Dosage: 32 DOSAGE FORMS DAILY; 2-2-2-2
  16. ASS 100 [Suspect]
     Active Substance: ASPIRIN
     Dosage: 100 MILLIGRAM DAILY;  0-1-0-0

REACTIONS (3)
  - Pericardial effusion [Unknown]
  - Pruritus [Unknown]
  - Dyspnoea [Unknown]
